FAERS Safety Report 5225144-6 (Version None)
Quarter: 2007Q1

REPORT INFORMATION
  Report Type: 
  Country: None (occurrence: None)
  Receive Date: 20070126
  Receipt Date: 20070110
  Transmission Date: 20070707
  Serious: Yes (Hospitalization, Other)
  Sender: FDA-Public Use
  Company Number: 2006BI017910

PATIENT
  Age: 70 Year
  Sex: Female
  Weight: 78.9259 kg

DRUGS (6)
  1. AVONEX [Suspect]
     Indication: MULTIPLE SCLEROSIS
     Dosage: 30 UG; QW; IM
     Route: 030
     Dates: start: 20041101
  2. GLUCOPHAGE [Concomitant]
  3. ZETIA [Concomitant]
  4. PLAVIX [Concomitant]
  5. PROVIGIL [Concomitant]
  6. PAXIL [Concomitant]

REACTIONS (17)
  - ACTIVATED PARTIAL THROMBOPLASTIN TIME ABNORMAL [None]
  - ACUTE MYOCARDIAL INFARCTION [None]
  - AORTIC DISORDER [None]
  - ASTHENIA [None]
  - CARDIOMEGALY [None]
  - CEREBROVASCULAR ACCIDENT [None]
  - CORONARY ARTERY DISEASE [None]
  - DEPRESSION [None]
  - DIABETES MELLITUS [None]
  - FALL [None]
  - FATIGUE [None]
  - HYPERTENSION [None]
  - NAUSEA [None]
  - PARAESTHESIA [None]
  - PRESYNCOPE [None]
  - VOMITING [None]
  - WHITE BLOOD CELL COUNT INCREASED [None]
